FAERS Safety Report 18505615 (Version 22)
Quarter: 2021Q2

REPORT INFORMATION
  Report Type: Spontaneous
  Country: JP (occurrence: JP)
  Receive Date: 20201116
  Receipt Date: 20210510
  Transmission Date: 20210717
  Serious: Yes (Hospitalization, Other)
  Sender: FDA-Public Use
  Company Number: NVSJ2016JP000445

PATIENT
  Sex: Male

DRUGS (61)
  1. DIOVAN [Suspect]
     Active Substance: VALSARTAN
     Dosage: 40 MG, QD(ONLY IN THE EVENING)
     Route: 065
     Dates: start: 202006
  2. AMLODINE [Suspect]
     Active Substance: AMLODIPINE BESYLATE
     Dosage: 10 MG
     Route: 048
  3. AMLODINE [Suspect]
     Active Substance: AMLODIPINE BESYLATE
     Dosage: 2.5 MG
     Route: 048
     Dates: start: 202006
  4. AMLODINE [Suspect]
     Active Substance: AMLODIPINE BESYLATE
     Dosage: 7.5 MG
     Route: 048
     Dates: start: 20210405
  5. AMLODINE [Suspect]
     Active Substance: AMLODIPINE BESYLATE
     Dosage: 10 MG, QD, IN THE MORNING
     Route: 048
     Dates: start: 20210406
  6. LULLAN [Suspect]
     Active Substance: PEROSPIRONE HYDROCHLORIDE
     Indication: ANXIETY
     Dosage: 4 MG, TID
     Route: 048
     Dates: start: 201911
  7. RISPERIDONE. [Suspect]
     Active Substance: RISPERIDONE
     Indication: ANXIETY
     Dosage: 1 MG, BID
     Route: 065
  8. MEILAX [Suspect]
     Active Substance: ETHYL LOFLAZEPATE
     Indication: STUPOR
     Dosage: UNK
     Route: 048
  9. EQUA TAB [Suspect]
     Active Substance: VILDAGLIPTIN
     Indication: TYPE 2 DIABETES MELLITUS
     Dosage: UNK
     Route: 048
     Dates: end: 20151005
  10. METGLUCO [Suspect]
     Active Substance: METFORMIN HYDROCHLORIDE
     Dosage: 500 MG
     Route: 048
  11. AMLODINE [Suspect]
     Active Substance: AMLODIPINE BESYLATE
     Dosage: 2.5 MG, AFTER DINNER
     Route: 048
  12. LULLAN [Suspect]
     Active Substance: PEROSPIRONE HYDROCHLORIDE
     Indication: PERSISTENT DEPRESSIVE DISORDER
     Dosage: 4 MG, BID
     Route: 048
  13. MEILAX [Suspect]
     Active Substance: ETHYL LOFLAZEPATE
     Dosage: UNK
     Route: 048
     Dates: start: 20201224
  14. METGLUCO [Suspect]
     Active Substance: METFORMIN HYDROCHLORIDE
     Indication: TYPE 2 DIABETES MELLITUS
     Dosage: 500 MG, BID
     Route: 048
     Dates: end: 20151005
  15. METGLUCO [Suspect]
     Active Substance: METFORMIN HYDROCHLORIDE
     Dosage: 500 MG, BID
     Route: 048
  16. AMLODINE [Suspect]
     Active Substance: AMLODIPINE BESYLATE
     Dosage: 10 MG, BID
     Route: 048
     Dates: start: 20201109
  17. LULLAN [Suspect]
     Active Substance: PEROSPIRONE HYDROCHLORIDE
     Indication: CHEST DISCOMFORT
     Dosage: 8 MG
     Route: 048
  18. MEILAX [Suspect]
     Active Substance: ETHYL LOFLAZEPATE
     Indication: LISTLESS
     Dosage: 2 MG
     Route: 048
  19. LOXONIN [Suspect]
     Active Substance: LOXOPROFEN SODIUM
     Indication: ARTHRALGIA
  20. BETANIS [Concomitant]
     Active Substance: MIRABEGRON
     Indication: PRODUCT USED FOR UNKNOWN INDICATION
     Dosage: UNK
     Route: 065
  21. DIOVAN [Suspect]
     Active Substance: VALSARTAN
     Dosage: 80 MG, BID
     Route: 048
  22. DIOVAN [Suspect]
     Active Substance: VALSARTAN
     Dosage: 40 MG, QD(AFTER DINNER)
     Route: 048
  23. METGLUCO [Suspect]
     Active Substance: METFORMIN HYDROCHLORIDE
     Indication: HYPERTENSION
     Dosage: 1000 MG, BID
     Route: 048
     Dates: start: 20160201
  24. METGLUCO [Suspect]
     Active Substance: METFORMIN HYDROCHLORIDE
     Dosage: 1500 MG
     Route: 048
  25. LULLAN [Suspect]
     Active Substance: PEROSPIRONE HYDROCHLORIDE
     Indication: ABULIA
     Dosage: 4 UNK,TOOK 4 MG IN THE AFTERNOON
     Route: 048
     Dates: start: 20201002
  26. LULLAN [Suspect]
     Active Substance: PEROSPIRONE HYDROCHLORIDE
     Dosage: 4 MG, BID(PRN)
     Route: 048
  27. RISPERIDONE. [Suspect]
     Active Substance: RISPERIDONE
     Indication: ABULIA
     Dosage: 8 MG
     Route: 065
     Dates: start: 2017, end: 2018
  28. RISPERIDONE. [Suspect]
     Active Substance: RISPERIDONE
     Dosage: TAKE REGULARLY AND PRN, PRN WITHDRAWAL
     Route: 065
     Dates: end: 201911
  29. CYMBALTA [Suspect]
     Active Substance: DULOXETINE HYDROCHLORIDE
     Indication: ANXIETY
     Dosage: 60 MG
     Route: 065
  30. LITHIUM. [Concomitant]
     Active Substance: LITHIUM
     Indication: ANXIETY
     Dosage: UNK
     Route: 065
  31. NEXIUM [Concomitant]
     Active Substance: ESOMEPRAZOLE MAGNESIUM
     Indication: PRODUCT USED FOR UNKNOWN INDICATION
     Dosage: UNK
     Route: 065
  32. DIOVAN [Suspect]
     Active Substance: VALSARTAN
     Dosage: 80 MG
     Route: 048
  33. METGLUCO [Suspect]
     Active Substance: METFORMIN HYDROCHLORIDE
     Dosage: 500 MG, BID, MORNING AND EVENING
     Route: 048
  34. AMLODINE [Suspect]
     Active Substance: AMLODIPINE BESYLATE
     Indication: HYPERTENSION
     Dosage: UNK
     Route: 048
     Dates: end: 20151005
  35. AMLODINE [Suspect]
     Active Substance: AMLODIPINE BESYLATE
     Dosage: 10 MG
     Route: 048
  36. LULLAN [Suspect]
     Active Substance: PEROSPIRONE HYDROCHLORIDE
     Dosage: UNK, 4 TIMES ONE DAY
     Route: 048
  37. LULLAN [Suspect]
     Active Substance: PEROSPIRONE HYDROCHLORIDE
     Dosage: 4 MG, TID
     Route: 048
  38. RISPERIDONE. [Suspect]
     Active Substance: RISPERIDONE
     Dosage: 1 MG, BID(PRN)
     Route: 065
  39. LOXONIN [Suspect]
     Active Substance: LOXOPROFEN SODIUM
     Indication: OSTEOARTHRITIS
     Dosage: UNK, TID
     Route: 061
  40. LITHIUM. [Concomitant]
     Active Substance: LITHIUM
     Dosage: 400 MG,TOOK 400 MG IN THE EVENING
     Route: 065
  41. EQUA TAB [Suspect]
     Active Substance: VILDAGLIPTIN
     Dosage: 50 MG, BID
     Route: 048
     Dates: start: 20160308
  42. DIOVAN [Suspect]
     Active Substance: VALSARTAN
     Indication: HYPERTENSION
     Dosage: UNK
     Route: 048
     Dates: end: 20151005
  43. DIOVAN [Suspect]
     Active Substance: VALSARTAN
     Dosage: UNK
     Route: 048
     Dates: start: 20151017
  44. AMLODINE [Suspect]
     Active Substance: AMLODIPINE BESYLATE
     Indication: ANGINA PECTORIS
     Dosage: UNK
     Route: 048
     Dates: start: 20151017
  45. CYMBALTA [Suspect]
     Active Substance: DULOXETINE HYDROCHLORIDE
     Dosage: UNK
     Route: 065
  46. AZELASTINE HYDROCHLORIDE. [Suspect]
     Active Substance: AZELASTINE HYDROCHLORIDE
     Indication: RHINITIS ALLERGIC
     Dosage: 8 MG
     Route: 065
  47. DIOVAN [Suspect]
     Active Substance: VALSARTAN
     Dosage: 80 MG IN THE MORNING, 40 MG IN THE EVENING, BID
     Route: 048
     Dates: start: 20200601
  48. AMLODINE [Suspect]
     Active Substance: AMLODIPINE BESYLATE
     Dosage: 10 MG, BID
     Route: 048
     Dates: start: 20201108
  49. AMLODINE [Suspect]
     Active Substance: AMLODIPINE BESYLATE
     Dosage: 5 MG
     Route: 048
     Dates: start: 20210224
  50. LULLAN [Suspect]
     Active Substance: PEROSPIRONE HYDROCHLORIDE
     Indication: STUPOR
     Dosage: 4 MG, BID(PRN)
     Route: 048
  51. MEILAX [Suspect]
     Active Substance: ETHYL LOFLAZEPATE
     Dosage: 1 MG, BID(PRN WHEN STUPOR)
     Route: 048
  52. LANDSEN [Suspect]
     Active Substance: CLONAZEPAM
     Indication: STUPOR
     Dosage: UNK
     Route: 048
  53. LANDSEN [Suspect]
     Active Substance: CLONAZEPAM
     Dosage: TAKEN ABOUT ONE?THIRD OF THE PRESCRIBED AMOUNT IN A SHORT TIME
     Route: 048
     Dates: start: 2019, end: 2019
  54. BELSOMRA [Concomitant]
     Active Substance: SUVOREXANT
     Indication: PRODUCT USED FOR UNKNOWN INDICATION
     Dosage: UNK
     Route: 065
  55. AMLODINE [Suspect]
     Active Substance: AMLODIPINE BESYLATE
     Dosage: 5 MG IN THE MORNING, 2.5 MG IN THE EVENING
     Route: 048
     Dates: start: 20200601
  56. AMLODINE [Suspect]
     Active Substance: AMLODIPINE BESYLATE
     Dosage: 5 MG, QD, IN THE MORNING
     Route: 048
  57. LULLAN [Suspect]
     Active Substance: PEROSPIRONE HYDROCHLORIDE
     Indication: IRRITABILITY
     Dosage: 4 MG, QD
     Route: 048
     Dates: start: 201912
  58. RISPERIDONE. [Suspect]
     Active Substance: RISPERIDONE
     Indication: PERSISTENT DEPRESSIVE DISORDER
     Dosage: UNK
     Route: 065
  59. MEILAX [Suspect]
     Active Substance: ETHYL LOFLAZEPATE
     Indication: SOMNOLENCE
     Dosage: UNK
     Route: 048
     Dates: start: 202006
  60. LANDSEN [Suspect]
     Active Substance: CLONAZEPAM
     Dosage: AS?NEEDED BASIS, 0.25MG, QD
     Route: 048
     Dates: start: 20210217
  61. WYPAX [Suspect]
     Active Substance: LORAZEPAM
     Indication: PRODUCT USED FOR UNKNOWN INDICATION
     Dosage: UNK
     Route: 065
     Dates: end: 2019

REACTIONS (63)
  - Dizziness postural [Recovered/Resolved]
  - Orthostatic hypotension [Recovered/Resolved]
  - Pollakiuria [Unknown]
  - Somnolence [Unknown]
  - Stupor [Unknown]
  - Incontinence [Unknown]
  - Insomnia [Unknown]
  - Ulcer haemorrhage [Recovered/Resolved]
  - Irritability [Unknown]
  - Dyskinesia [Recovering/Resolving]
  - Anaemia [Unknown]
  - Phobia [Unknown]
  - Vision blurred [Unknown]
  - Dizziness postural [Unknown]
  - Dizziness [Unknown]
  - Fall [Recovered/Resolved]
  - Time perception altered [Unknown]
  - Feeling abnormal [Unknown]
  - Hypoglycaemia [Unknown]
  - Mental status changes [Unknown]
  - Parkinsonism [Unknown]
  - Head injury [Recovered/Resolved]
  - Pain in extremity [Recovered/Resolved]
  - Eating disorder [Unknown]
  - Sensory disturbance [Unknown]
  - Arthralgia [Unknown]
  - Glycosylated haemoglobin increased [Recovering/Resolving]
  - Weight decreased [Unknown]
  - Blood pressure increased [Unknown]
  - Cardiac discomfort [Recovered/Resolved]
  - Drug dependence [Unknown]
  - Depressed level of consciousness [Unknown]
  - Product dose omission in error [Unknown]
  - Memory impairment [Unknown]
  - Hyperphagia [Unknown]
  - Vasodilatation [Unknown]
  - Angina pectoris [Unknown]
  - Orthostatic hypotension [Recovering/Resolving]
  - Stress [Unknown]
  - Gait disturbance [Unknown]
  - Weight increased [Unknown]
  - Osteoarthritis [Unknown]
  - Anxiety [Unknown]
  - Chest discomfort [Recovered/Resolved]
  - Cardiac discomfort [Unknown]
  - Tremor [Recovered/Resolved]
  - Thought blocking [Recovered/Resolved]
  - Abulia [Unknown]
  - Akathisia [Unknown]
  - Dysphonia [Unknown]
  - Palpitations [Unknown]
  - Skin laceration [Recovered/Resolved]
  - Drug interaction [Unknown]
  - Blood pressure fluctuation [Unknown]
  - Tension [Unknown]
  - Physical deconditioning [Unknown]
  - Psychiatric symptom [Unknown]
  - Fatigue [Unknown]
  - Visual impairment [Unknown]
  - Muscular weakness [Unknown]
  - Dysstasia [Unknown]
  - Behaviour disorder [Unknown]
  - Listless [Recovered/Resolved]

NARRATIVE: CASE EVENT DATE: 20160201
